FAERS Safety Report 12841781 (Version 1)
Quarter: 2016Q4

REPORT INFORMATION
  Report Type: Spontaneous
  Country: US (occurrence: US)
  Receive Date: 20161012
  Receipt Date: 20161012
  Transmission Date: 20170207
  Serious: No
  Sender: FDA-Public Use
  Company Number: US-SEATTLE GENETICS-2016SGN00154

PATIENT
  Sex: Male

DRUGS (1)
  1. ADCETRIS [Suspect]
     Active Substance: BRENTUXIMAB VEDOTIN
     Indication: HODGKIN^S DISEASE
     Route: 065

REACTIONS (7)
  - Neuropathy peripheral [Unknown]
  - Hodgkin^s disease [Unknown]
  - Malaise [Unknown]
  - Nausea [Unknown]
  - Sluggishness [Unknown]
  - Muscle spasms [Unknown]
  - Somnolence [Unknown]
